FAERS Safety Report 6175320-3 (Version None)
Quarter: 2009Q2

REPORT INFORMATION
  Report Type: 
  Country: None (occurrence: None)
  Receive Date: 20090429
  Receipt Date: 20090417
  Transmission Date: 20091009
  Serious: Yes (Other)
  Sender: FDA-Public Use
  Company Number: KV200900459

PATIENT
  Age: 37 Year
  Sex: Female

DRUGS (1)
  1. PRIMACARE(PRENATAL VITAMIN) TABLET [Suspect]
     Indication: VITAMIN SUPPLEMENTATION
     Dosage: ORAL
     Route: 048

REACTIONS (5)
  - ABORTION INDUCED [None]
  - ABORTION SPONTANEOUS [None]
  - DRUG EXPOSURE DURING PREGNANCY [None]
  - OBSTETRIC PROCEDURE COMPLICATION [None]
  - PREMATURE RUPTURE OF MEMBRANES [None]
